FAERS Safety Report 7039686-4 (Version None)
Quarter: 2010Q4

REPORT INFORMATION
  Report Type: 
  Country: None (occurrence: None)
  Receive Date: 20101012
  Receipt Date: 20100930
  Transmission Date: 20110411
  Serious: Yes (Hospitalization)
  Sender: FDA-Public Use
  Company Number: CH-WYE-H17972810

PATIENT
  Age: 74 Year
  Sex: Male

DRUGS (7)
  1. PANTOPRAZOLE SODIUM [Suspect]
     Indication: HAEMATEMESIS
     Route: 048
     Dates: start: 20100201
  2. AVELOX [Suspect]
     Indication: INFECTION
     Route: 048
     Dates: start: 20100820, end: 20100906
  3. BETAMETHASONE VALERATE/FUSIDIC ACID [Concomitant]
     Dosage: UNKNOWN
     Route: 061
     Dates: start: 20100801
  4. PARACETAMOL [Concomitant]
     Indication: PAIN
     Route: 048
     Dates: start: 20100801
  5. TRAMADOL HCL [Concomitant]
     Indication: PAIN
     Route: 048
     Dates: start: 20100801
  6. COLCHICINE [Suspect]
     Indication: CUTANEOUS VASCULITIS
     Route: 048
     Dates: start: 20100825, end: 20100915
  7. ZOLPIDEM TARTRATE [Concomitant]
     Indication: INSOMNIA
     Dosage: UNKNOWN
     Route: 048

REACTIONS (5)
  - GLOMERULONEPHRITIS [None]
  - HENOCH-SCHONLEIN PURPURA [None]
  - LEUKOCYTOCLASTIC VASCULITIS [None]
  - RENAL FAILURE [None]
  - TOXIC SKIN ERUPTION [None]
